FAERS Safety Report 21602724 (Version 1)
Quarter: 2022Q4

REPORT INFORMATION
  Report Type: Spontaneous
  Country: CN (occurrence: CN)
  Receive Date: 20221116
  Receipt Date: 20221116
  Transmission Date: 20230113
  Serious: Yes (Other)
  Sender: FDA-Public Use
  Company Number: CN-PFIZER INC-PV202200102523

PATIENT
  Age: 28 Year
  Sex: Female
  Weight: 68.5 kg

DRUGS (2)
  1. HEMABATE [Suspect]
     Active Substance: CARBOPROST TROMETHAMINE
     Indication: Uterine hypotonus
     Dosage: 250 UG, 1X/DAY
     Route: 030
     Dates: start: 20221106, end: 20221106
  2. HEMABATE [Suspect]
     Active Substance: CARBOPROST TROMETHAMINE
     Indication: Haemostasis

REACTIONS (3)
  - Diarrhoea [Recovered/Resolved]
  - Asthenia [Unknown]
  - Gastrointestinal hypermotility [Unknown]

NARRATIVE: CASE EVENT DATE: 20221106
